FAERS Safety Report 10631060 (Version 3)
Quarter: 2015Q4

REPORT INFORMATION
  Report Type: Spontaneous
  Country: US (occurrence: US)
  Receive Date: 20141205
  Receipt Date: 20151116
  Transmission Date: 20160304
  Serious: No
  Sender: FDA-Public Use
  Company Number: US-PFIZER INC-2014332936

PATIENT
  Sex: Female

DRUGS (1)
  1. LYRICA [Suspect]
     Active Substance: PREGABALIN
     Dosage: 100 MG, UNK

REACTIONS (5)
  - Dizziness [Unknown]
  - Pain [Not Recovered/Not Resolved]
  - Bursitis [Unknown]
  - Nausea [Unknown]
  - Drug withdrawal syndrome [Unknown]
